FAERS Safety Report 4421098-0 (Version None)
Quarter: 2004Q3

REPORT INFORMATION
  Report Type: 
  Country: None (occurrence: None)
  Receive Date: 20040803
  Receipt Date: 20040719
  Transmission Date: 20050211
  Serious: Yes (Other)
  Sender: FDA-Public Use
  Company Number: 199291

PATIENT
  Age: 32 Year
  Sex: Female
  Weight: 127.0072 kg

DRUGS (1)
  1. AVONEX [Suspect]
     Indication: MULTIPLE SCLEROSIS
     Dosage: 30 MCG QW IM
     Route: 030
     Dates: start: 20040514, end: 20040528

REACTIONS (6)
  - BLISTER [None]
  - GENERALISED ERYTHEMA [None]
  - RASH PRURITIC [None]
  - THROAT TIGHTNESS [None]
  - URTICARIA [None]
  - VOMITING [None]
